FAERS Safety Report 7991013-1 (Version None)
Quarter: 2011Q4

REPORT INFORMATION
  Report Type: 
  Country: None (occurrence: None)
  Receive Date: 20111219
  Receipt Date: 20111019
  Transmission Date: 20120403
  Serious: Yes (Other)
  Sender: FDA-Public Use
  Company Number: US-ROCHE-1022308

PATIENT
  Sex: Female

DRUGS (3)
  1. HERCEPTIN [Concomitant]
     Route: 042
  2. ZOMETA [Concomitant]
     Route: 042
  3. XELODA [Suspect]
     Indication: BREAST CANCER METASTATIC
     Route: 048
     Dates: start: 20111015

REACTIONS (4)
  - FALL [None]
  - HYPOAESTHESIA [None]
  - NEOPLASM [None]
  - PARAESTHESIA [None]
